FAERS Safety Report 24273042 (Version 1)
Quarter: 2024Q3

REPORT INFORMATION
  Report Type: Report from Study
  Country: US (occurrence: US)
  Receive Date: 20240902
  Receipt Date: 20240902
  Transmission Date: 20241017
  Serious: Yes (Other)
  Sender: ROCHE
  Company Number: US-ROCHE-10000065478

PATIENT
  Age: 41 Year
  Sex: Female
  Weight: 63.8 kg

DRUGS (5)
  1. OCREVUS [Suspect]
     Active Substance: OCRELIZUMAB
     Indication: Demyelination
     Route: 065
  2. VALIUM [Suspect]
     Active Substance: DIAZEPAM
     Indication: Vertigo
     Route: 048
  3. NEXPLANON [Concomitant]
     Active Substance: ETONOGESTREL
  4. VITAMIN B12 [Concomitant]
     Active Substance: CYANOCOBALAMIN
  5. ANTIVERT [Concomitant]
     Active Substance: MECLIZINE HYDROCHLORIDE

REACTIONS (12)
  - Abdominal pain [Unknown]
  - Breast malformation [Unknown]
  - Metabolic disorder [Unknown]
  - Demyelination [Unknown]
  - Central nervous system lesion [Unknown]
  - Hemiparesis [Unknown]
  - Vertigo [Unknown]
  - Gait disturbance [Unknown]
  - Dizziness [Unknown]
  - Sedation [Unknown]
  - Vitamin B12 decreased [Unknown]
  - Hypersomnia [Unknown]

NARRATIVE: CASE EVENT DATE: 20231101
